FAERS Safety Report 5295525-3 (Version None)
Quarter: 2007Q2

REPORT INFORMATION
  Report Type: 
  Country: None (occurrence: None)
  Receive Date: 20070405
  Receipt Date: 20070321
  Transmission Date: 20071010
  Serious: Yes (Death)
  Sender: FDA-Public Use
  Company Number: 239163

PATIENT
  Age: 59 Year
  Sex: Male

DRUGS (2)
  1. AVASTIN [Suspect]
     Indication: LUNG NEOPLASM MALIGNANT
     Dosage: 400 MG, QD, INTRAVENOUS
     Route: 042
     Dates: start: 20060928, end: 20061129
  2. GEMZAR [Concomitant]

REACTIONS (2)
  - INTESTINAL PERFORATION [None]
  - PERITONITIS [None]
